FAERS Safety Report 9580367 (Version 1)
Quarter: 2013Q3

REPORT INFORMATION
  Report Type: Spontaneous
  Country: US (occurrence: None)
  Receive Date: 20130916
  Receipt Date: 20130916
  Transmission Date: 20140520
  Serious: Yes (Other)
  Sender: FDA-Public Use
  Company Number: JPI-P-029309

PATIENT
  Age: 27 Year
  Sex: Male
  Weight: 81.65 kg

DRUGS (10)
  1. XYREM [Suspect]
     Indication: NARCOLEPSY
     Route: 048
     Dates: start: 20130113, end: 20130114
  2. DIVALPROEX SODIUM [Suspect]
     Indication: PRODUCT USED FOR UNKNOWN INDICATION
  3. MIRTAZAPINE [Suspect]
     Indication: PRODUCT USED FOR UNKNOWN INDICATION
  4. MULTIVITAMINS [Concomitant]
  5. TAURINE [Concomitant]
  6. KAVINACE [Concomitant]
  7. RABEPRAZOLE SODIUM [Concomitant]
  8. NYSTATIN [Concomitant]
  9. MELATONIN [Concomitant]
  10. B12 [Concomitant]

REACTIONS (5)
  - Suicidal ideation [None]
  - Feeling abnormal [None]
  - Lethargy [None]
  - Disturbance in attention [None]
  - Fatigue [None]
